FAERS Safety Report 14126577 (Version 2)
Quarter: 2017Q4

REPORT INFORMATION
  Report Type: Report from Study
  Country: US (occurrence: US)
  Receive Date: 20171025
  Receipt Date: 20171110
  Transmission Date: 20180321
  Serious: Yes (Death)
  Sender: FDA-Public Use
  Company Number: US-ACTELION-A-NJ2017-161345

PATIENT
  Age: 81 Year
  Sex: Female
  Weight: 112.2 kg

DRUGS (2)
  1. UPTRAVI [Suspect]
     Active Substance: SELEXIPAG
     Indication: PULMONARY ARTERIAL HYPERTENSION
     Dosage: 400 MCG, BID
     Route: 048
  2. WARFARIN [Concomitant]
     Active Substance: WARFARIN

REACTIONS (5)
  - Emphysema [Fatal]
  - Cardiac failure congestive [Fatal]
  - Hypoxia [Fatal]
  - Pulmonary hypertension [Fatal]
  - Aortic stenosis [Fatal]
